FAERS Safety Report 6257335-X (Version None)
Quarter: 2009Q3

REPORT INFORMATION
  Report Type: 
  Country: None (occurrence: None)
  Receive Date: 20090706
  Receipt Date: 20090612
  Transmission Date: 20100115
  Serious: Yes (Death, Other)
  Sender: FDA-Public Use
  Company Number: PHHY2009JP04167

PATIENT
  Sex: Male

DRUGS (11)
  1. DIOVAN T30230+TAB+HY [Suspect]
     Indication: HYPERTENSION
     Dosage: 80 MG, QD
     Route: 048
     Dates: start: 20071016, end: 20080707
  2. AMLODIPINE [Concomitant]
     Indication: HYPERTENSION
     Dosage: 2.5 MG, QD
     Route: 048
     Dates: start: 20021029
  3. LONGES [Concomitant]
     Indication: HYPERTENSION
     Dosage: 10 MG
     Route: 048
     Dates: start: 20021029, end: 20071016
  4. ASPIRIN [Concomitant]
     Dosage: 100 MG
     Route: 048
     Dates: start: 20021029
  5. LASIX [Concomitant]
     Dosage: 40 MG
     Route: 048
     Dates: start: 20021029
  6. ALDACTONE [Concomitant]
     Dosage: 50 MG
     Route: 048
     Dates: start: 20021029
  7. UNIPHYL [Concomitant]
     Dosage: 200 MG
     Route: 048
     Dates: start: 20021029
  8. FRANDOL [Concomitant]
     Dosage: 40 MG
     Route: 048
     Dates: start: 20021029
  9. ASPARA K [Concomitant]
     Dosage: 300 MG
     Route: 048
     Dates: start: 20021029
  10. BIOFERMIN [Concomitant]
     Dosage: 3 GM
     Route: 048
     Dates: start: 20021029
  11. MAGMITT [Concomitant]
     Dosage: 1980 MG
     Route: 048
     Dates: start: 20021029

REACTIONS (7)
  - ARTERIOSCLEROSIS OBLITERANS [None]
  - ASPIRATION [None]
  - BLOOD UREA INCREASED [None]
  - CONDITION AGGRAVATED [None]
  - EATING DISORDER [None]
  - PNEUMONIA [None]
  - RESPIRATORY FAILURE [None]
